FAERS Safety Report 8612173-5 (Version None)
Quarter: 2012Q3

REPORT INFORMATION
  Report Type: 
  Country: None (occurrence: None)
  Receive Date: 20120822
  Receipt Date: 20120821
  Transmission Date: 20120928
  Serious: Yes (Death, Life-Threatening)
  Sender: FDA-Public Use
  Company Number: BR-B.I. PHARMACEUTICALS,INC./RIDGEFIELD-2012-BR-00942BR

PATIENT
  Sex: Male
  Weight: 56 kg

DRUGS (4)
  1. TAMSULOSIN HYDROCHLORIDE [Suspect]
     Indication: URINARY RETENTION
     Dosage: 0.4 MG
     Route: 048
     Dates: start: 20120201, end: 20120813
  2. AMPLICTIL [Concomitant]
     Indication: DEPRESSION
     Route: 048
     Dates: end: 20120813
  3. CLONAZEPAM [Concomitant]
     Indication: DEPRESSION
     Route: 048
     Dates: start: 20110101, end: 20120813
  4. FLUOXETINE HYDROCHLORIDE [Concomitant]
     Indication: DEPRESSION
     Route: 048
     Dates: start: 20110101, end: 20120813

REACTIONS (3)
  - CARDIO-RESPIRATORY ARREST [None]
  - HEART RATE DECREASED [None]
  - OXYGEN SATURATION DECREASED [None]
